FAERS Safety Report 12775425 (Version 1)
Quarter: 2016Q3

REPORT INFORMATION
  Report Type: Spontaneous
  Country: FR (occurrence: FR)
  Receive Date: 20160923
  Receipt Date: 20160923
  Transmission Date: 20161109
  Serious: Yes (Hospitalization)
  Sender: FDA-Public Use
  Company Number: FR-PFIZER INC-2016439080

PATIENT
  Age: 94 Year
  Sex: Female

DRUGS (14)
  1. FUROSEMIDE. [Concomitant]
     Active Substance: FUROSEMIDE
  2. TAVANIC [Concomitant]
     Active Substance: LEVOFLOXACIN
     Dosage: UNK
     Dates: start: 20160805, end: 20160809
  3. LEVOTHYROX [Concomitant]
     Active Substance: LEVOTHYROXINE
  4. RENUTRYL [Concomitant]
  5. AMLOR [Concomitant]
     Active Substance: AMLODIPINE BESYLATE
  6. OMEPRAZOLE. [Concomitant]
     Active Substance: OMEPRAZOLE
  7. UVEDOSE [Concomitant]
     Active Substance: CHOLECALCIFEROL
  8. TARDYFERON [Concomitant]
     Active Substance: FERROUS SULFATE
  9. COUMADINE [Concomitant]
     Active Substance: WARFARIN SODIUM
  10. CARDENSIEL [Concomitant]
     Active Substance: BISOPROLOL FUMARATE
  11. LAMICTAL [Concomitant]
     Active Substance: LAMOTRIGINE
  12. DALACINE [Suspect]
     Active Substance: CLINDAMYCIN HYDROCHLORIDE
     Dosage: 2 G, 3X/DAY
     Route: 042
     Dates: start: 20160727, end: 20160809
  13. OROCAL /07357001/ [Concomitant]
  14. TAVANIC [Concomitant]
     Active Substance: LEVOFLOXACIN
     Dosage: 250 MG, UNK
     Route: 048

REACTIONS (2)
  - Rash [Recovered/Resolved]
  - Pruritus [Recovered/Resolved]

NARRATIVE: CASE EVENT DATE: 20160809
